FAERS Safety Report 10380490 (Version 1)
Quarter: 2014Q1

REPORT INFORMATION
  Report Type: Spontaneous
  Country: US (occurrence: None)
  Receive Date: 20140306
  Receipt Date: 20140306
  Transmission Date: 20141002
  Serious: Yes (Other)
  Sender: FDA-Public Use
  Company Number: 163-21880-13120141

PATIENT
  Age: 63 Year
  Sex: Female
  Weight: 91.63 kg

DRUGS (12)
  1. REVLIMID (LENALIDOMIDE) (15 MILLIGRAM, CAPSULES) [Suspect]
     Indication: PLASMA CELL MYELOMA
     Route: 048
     Dates: start: 20121207
  2. DEXAMETHASONE [Concomitant]
  3. ALLOPURINOL [Concomitant]
  4. ASPIRIN (ACETYLSALICYLIC ACID) [Concomitant]
  5. ACYCLOVIR (ACICLOVIR) [Concomitant]
  6. POTASSIUM [Concomitant]
  7. VITAMIN D (ERGOCALCIFEROL) [Concomitant]
  8. LIPITOR (ATORVASTATIN) [Concomitant]
  9. NORVASC (AMLODIPINE BESILATE) [Concomitant]
  10. ZANTAC (RANITIDEINE HYDROCHLORIDE) [Concomitant]
  11. VELCADE (BORTEZOMIB) [Concomitant]
  12. SYNTHROID (LEVOTHYROXINE SODIUM) [Concomitant]

REACTIONS (2)
  - Haemoglobin decreased [None]
  - Platelet count decreased [None]
